FAERS Safety Report 14854112 (Version 1)
Quarter: 2018Q2

REPORT INFORMATION
  Report Type: Report from Study
  Country: IE (occurrence: IE)
  Receive Date: 20180507
  Receipt Date: 20180507
  Transmission Date: 20180711
  Serious: Yes (Other)
  Sender: FDA-Public Use
  Company Number: IE-JNJFOC-20180435209

PATIENT
  Age: 37 Year
  Sex: Female

DRUGS (3)
  1. TOVIAZ [Concomitant]
     Active Substance: FESOTERODINE FUMARATE
     Route: 065
  2. STELARA [Suspect]
     Active Substance: USTEKINUMAB
     Indication: PSORIASIS
     Route: 058
     Dates: start: 20180131
  3. NEO-CYTAMEN [Concomitant]
     Route: 065

REACTIONS (4)
  - Wheezing [Recovered/Resolved]
  - Urinary tract infection [Recovered/Resolved]
  - Headache [Not Recovered/Not Resolved]
  - Dehydration [Not Recovered/Not Resolved]

NARRATIVE: CASE EVENT DATE: 20180131
